FAERS Safety Report 15981381 (Version 7)
Quarter: 2019Q3

REPORT INFORMATION
  Report Type: Spontaneous
  Country: IT (occurrence: IT)
  Receive Date: 20190219
  Receipt Date: 20190906
  Transmission Date: 20191004
  Serious: Yes (Life-Threatening, Hospitalization, Other)
  Sender: FDA-Public Use
  Company Number: PHHY2019IT037943

PATIENT
  Age: 62 Year
  Sex: Male

DRUGS (4)
  1. IMATINIB. [Suspect]
     Active Substance: IMATINIB MESYLATE
     Indication: ACUTE MYELOID LEUKAEMIA
  2. IMATINIB. [Suspect]
     Active Substance: IMATINIB MESYLATE
     Indication: SYSTEMIC SCLERODERMA
  3. IMATINIB. [Suspect]
     Active Substance: IMATINIB MESYLATE
     Indication: GRAFT VERSUS HOST DISEASE IN SKIN
     Dosage: 100 MG, QD
     Route: 065
  4. SOTALOL. [Concomitant]
     Active Substance: SOTALOL
     Indication: PRODUCT USED FOR UNKNOWN INDICATION
     Dosage: UNK
     Route: 065

REACTIONS (18)
  - Anuria [Recovering/Resolving]
  - Haemodynamic instability [Unknown]
  - Blood lactic acid increased [Recovering/Resolving]
  - Confusional state [Recovering/Resolving]
  - Blood pressure systolic inspiratory decreased [Recovering/Resolving]
  - Organ failure [Unknown]
  - Hepatic congestion [Recovering/Resolving]
  - Poor peripheral circulation [Recovering/Resolving]
  - Cardiac tamponade [Recovering/Resolving]
  - Concomitant disease aggravated [Unknown]
  - Product use in unapproved indication [Unknown]
  - Off label use [Unknown]
  - Lethargy [Recovering/Resolving]
  - Multiple organ dysfunction syndrome [Recovering/Resolving]
  - Condition aggravated [Recovering/Resolving]
  - Pericardial effusion [Recovering/Resolving]
  - Intestinal congestion [Recovering/Resolving]
  - General physical condition abnormal [Unknown]
